FAERS Safety Report 7285666-3 (Version None)
Quarter: 2011Q1

REPORT INFORMATION
  Report Type: 
  Country: None (occurrence: None)
  Receive Date: 20110210
  Receipt Date: 20110203
  Transmission Date: 20110831
  Serious: Yes (Hospitalization)
  Sender: FDA-Public Use
  Company Number: B0661124A

PATIENT
  Age: 60 Year
  Sex: Male
  Weight: 65 kg

DRUGS (12)
  1. AMITRIPTYLINE HYDROCHLORIDE [Concomitant]
     Dosage: 100MG PER DAY
     Dates: start: 20090105
  2. SALAMOL [Concomitant]
     Route: 055
     Dates: start: 20051026
  3. FLIXONASE [Concomitant]
     Dates: start: 20021028
  4. AMOXICILLIN [Suspect]
  5. PIRITON [Concomitant]
     Dates: start: 20100520
  6. NICORETTE [Concomitant]
     Dosage: 15MG CUMULATIVE DOSE
     Route: 062
     Dates: start: 20100429
  7. CO-DYDRAMOL [Concomitant]
     Indication: PAIN
     Dates: start: 20070221
  8. PANTOPRAZOLE [Concomitant]
     Dosage: 40MG PER DAY
     Dates: start: 20050527
  9. ALUPENT [Suspect]
     Dosage: 60MG PER DAY
     Route: 048
     Dates: start: 20100427, end: 20100430
  10. NICOTINE [Concomitant]
     Route: 055
     Dates: start: 20100429
  11. MELOXICAM [Concomitant]
     Dosage: 15MG PER DAY
     Dates: start: 20070914
  12. PROPRANOLOL HYDROCHLORIDE [Concomitant]
     Dosage: 80MG PER DAY
     Dates: start: 20070816

REACTIONS (4)
  - BLISTER [None]
  - HYPERSENSITIVITY [None]
  - VISUAL IMPAIRMENT [None]
  - DERMATITIS ALLERGIC [None]
